FAERS Safety Report 8597513 (Version 3)
Quarter: 2013Q4

REPORT INFORMATION
  Report Type: Spontaneous
  Country: US (occurrence: US)
  Receive Date: 20120605
  Receipt Date: 20131129
  Transmission Date: 20140711
  Serious: Yes (Disabling, Other)
  Sender: FDA-Public Use
  Company Number: US-ASTRAZENECA-2012SE34465

PATIENT
  Sex: Female

DRUGS (9)
  1. NEXIUM [Suspect]
     Indication: GASTROOESOPHAGEAL REFLUX DISEASE
     Dosage: TWO TIMES A DAY
     Route: 048
  2. NEXIUM [Suspect]
     Indication: GASTROOESOPHAGEAL REFLUX DISEASE
     Route: 048
     Dates: start: 20130311
  3. NEXIUM [Suspect]
     Indication: GASTROOESOPHAGEAL REFLUX DISEASE
     Route: 048
     Dates: start: 20130429
  4. NEXIUM [Suspect]
     Indication: GASTROOESOPHAGEAL REFLUX DISEASE
     Route: 048
  5. PRILOSEC OTC [Suspect]
     Route: 048
  6. ZOLOFT [Concomitant]
  7. TOVIAZ [Concomitant]
     Indication: URINARY RETENTION
     Route: 048
     Dates: start: 20130429
  8. NORVASC [Concomitant]
     Indication: HYPERTENSION
     Dates: start: 20130311
  9. TIZANIDINE [Concomitant]
     Indication: MYALGIA
     Dates: start: 20130311

REACTIONS (12)
  - Intervertebral disc protrusion [Unknown]
  - Osteoarthritis [Unknown]
  - Spinal compression fracture [Unknown]
  - Depression [Unknown]
  - Osteoporosis [Unknown]
  - Bone disorder [Unknown]
  - Arthritis [Unknown]
  - Vitamin D deficiency [Unknown]
  - Arthropathy [Unknown]
  - Intervertebral disc space narrowing [Unknown]
  - Spinal osteoarthritis [Unknown]
  - Spinal column stenosis [Unknown]
